FAERS Safety Report 20339170 (Version 3)
Quarter: 2022Q3

REPORT INFORMATION
  Report Type: Report from Study
  Country: US (occurrence: US)
  Receive Date: 20220117
  Receipt Date: 20220714
  Transmission Date: 20221026
  Serious: Yes (Death, Hospitalization)
  Sender: FDA-Public Use
  Company Number: US-ACADIA PHARMACEUTICALS INC.-ACA-2022-PIM-000072

PATIENT
  Age: 84 Year
  Sex: Male

DRUGS (3)
  1. NUPLAZID [Suspect]
     Active Substance: PIMAVANSERIN TARTRATE
     Indication: Parkinson^s disease
     Dosage: 34 MILLIGRAM, QD
     Route: 048
     Dates: start: 20201230, end: 20220121
  2. NUPLAZID [Suspect]
     Active Substance: PIMAVANSERIN TARTRATE
     Indication: Delusion
  3. NUPLAZID [Suspect]
     Active Substance: PIMAVANSERIN TARTRATE
     Indication: Hallucination

REACTIONS (6)
  - Parkinson^s disease [Fatal]
  - Hernia [Not Recovered/Not Resolved]
  - Somnolence [Not Recovered/Not Resolved]
  - Movement disorder [Unknown]
  - Hyporesponsive to stimuli [Unknown]
  - Speech disorder [Unknown]

NARRATIVE: CASE EVENT DATE: 20211220
